FAERS Safety Report 10052234 (Version 2)
Quarter: 2014Q2

REPORT INFORMATION
  Report Type: Spontaneous
  Country: US (occurrence: US)
  Receive Date: 20140402
  Receipt Date: 20140407
  Transmission Date: 20141212
  Serious: No
  Sender: FDA-Public Use
  Company Number: US-009507513-1404USA000212

PATIENT
  Age: 6 Year
  Sex: Female

DRUGS (5)
  1. PROVENTIL [Suspect]
     Indication: ASTHMA
     Dosage: 2 PUFFS EVERY 3 TO 4 HOURS
     Route: 055
     Dates: start: 20140301, end: 20140328
  2. PROVENTIL [Suspect]
     Dosage: 2 PUFFS EVERY 3 TO 4 HOURS
     Route: 055
     Dates: start: 20140301, end: 20140328
  3. SINGULAIR [Concomitant]
     Route: 048
  4. PRILOSEC [Concomitant]
     Route: 048
  5. VITAMINS (UNSPECIFIED) [Concomitant]

REACTIONS (2)
  - Drug ineffective [Unknown]
  - Underdose [Unknown]
